FAERS Safety Report 5120964-0 (Version None)
Quarter: 2006Q4

REPORT INFORMATION
  Report Type: 
  Country: None (occurrence: None)
  Receive Date: 20061003
  Receipt Date: 20061003
  Transmission Date: 20070319
  Serious: Yes (Hospitalization, Disabling, Other)
  Sender: FDA-Public Use
  Company Number: None

PATIENT
  Age: 9 Year
  Sex: Male
  Weight: 34.0198 kg

DRUGS (2)
  1. COLAZAL [Suspect]
     Indication: COLITIS ULCERATIVE
     Dosage: 750 MG 3X DAILY PO
     Route: 048
     Dates: start: 20040214
  2. COLAZAL [Suspect]
     Indication: CROHN'S DISEASE
     Dosage: 750 MG 3X DAILY PO
     Route: 048
     Dates: start: 20040214

REACTIONS (5)
  - DRUG EFFECT DECREASED [None]
  - EDUCATIONAL PROBLEM [None]
  - GROWTH RETARDATION [None]
  - PHARMACEUTICAL PRODUCT COMPLAINT [None]
  - WEIGHT GAIN POOR [None]
